FAERS Safety Report 7320456 (Version 2)
Quarter: 2013Q3

REPORT INFORMATION
  Report Type: Spontaneous
  Country: JP (occurrence: JP)
  Receive Date: 20100315
  Receipt Date: 20130712
  Transmission Date: 20140515
  Serious: Yes (Other)
  Sender: FDA-Public Use
  Company Number: JP-ROCHE-641840

PATIENT
  Age: 65 Year
  Sex: Male

DRUGS (6)
  1. AVASTIN [Suspect]
     Indication: RECTAL CANCER RECURRENT
     Route: 041
  2. ELPLAT [Concomitant]
     Indication: RECTAL CANCER RECURRENT
     Route: 041
  3. 5-FU [Concomitant]
     Indication: RECTAL CANCER RECURRENT
     Route: 040
  4. 5-FU [Concomitant]
     Dosage: ROUTE: INTRAVENOUS DRIP
     Route: 040
  5. LEVOFOLINATE [Concomitant]
     Indication: RECTAL CANCER RECURRENT
     Dosage: DRUG: LEVOFOLINATE CALCIUM
     Route: 041
  6. LEVOFOLINATE [Concomitant]
     Route: 041

REACTIONS (1)
  - Necrotising fasciitis [Recovered/Resolved]
